FAERS Safety Report 5678588-2 (Version None)
Quarter: 2008Q1

REPORT INFORMATION
  Report Type: 
  Country: None (occurrence: None)
  Receive Date: 20080325
  Receipt Date: 20080317
  Transmission Date: 20080703
  Serious: Yes (Hospitalization, Other)
  Sender: FDA-Public Use
  Company Number: US-ROCHE-432383

PATIENT
  Age: 22 Year
  Sex: Female
  Weight: 86.2 kg

DRUGS (5)
  1. ACCUTANE [Suspect]
     Indication: ACNE
     Route: 048
     Dates: start: 19870101
  2. ACCUTANE [Suspect]
     Dosage: 40 MG DAILY, THEN ADD 40 MG MORE EVERY OTHER DAY.
     Route: 048
     Dates: start: 19940713, end: 19940823
  3. ACCUTANE [Suspect]
     Route: 048
     Dates: start: 19940824, end: 19950101
  4. ACCUTANE [Suspect]
     Route: 048
     Dates: start: 20000101, end: 20000201
  5. ACCUTANE [Suspect]
     Route: 048
     Dates: start: 20000217, end: 20000101

REACTIONS (27)
  - ACQUIRED OESOPHAGEAL WEB [None]
  - ANXIETY [None]
  - BACK PAIN [None]
  - CERVICITIS [None]
  - CERVICOBRACHIAL SYNDROME [None]
  - CHAPPED LIPS [None]
  - CHOLELITHIASIS [None]
  - COLITIS [None]
  - COLITIS ULCERATIVE [None]
  - DRUG EXPOSURE DURING PREGNANCY [None]
  - DRY EYE [None]
  - DRY SKIN [None]
  - EMOTIONAL DISTRESS [None]
  - ENDOMETRIAL HYPERPLASIA [None]
  - EPISTAXIS [None]
  - EYE IRRITATION [None]
  - GASTROOESOPHAGEAL REFLUX DISEASE [None]
  - HIATUS HERNIA [None]
  - HYPOAESTHESIA [None]
  - INFLAMMATORY BOWEL DISEASE [None]
  - INTERVERTEBRAL DISC DEGENERATION [None]
  - NASAL DRYNESS [None]
  - PARAESTHESIA [None]
  - PREGNANCY [None]
  - PROCTITIS [None]
  - RADICULOPATHY [None]
  - UTERINE DILATION AND CURETTAGE [None]
